FAERS Safety Report 4539561-0 (Version None)
Quarter: 2004Q4

REPORT INFORMATION
  Report Type: 
  Country: None (occurrence: None)
  Receive Date: 20041222
  Receipt Date: 20041213
  Transmission Date: 20050328
  Serious: Yes (Hospitalization)
  Sender: FDA-Public Use
  Company Number: 2004-12-0652

PATIENT
  Age: 10 Year
  Sex: Female

DRUGS (1)
  1. AERIUS (DESLORATADINE) ^CLARINEX^ TABLETS [Suspect]
     Indication: NASOPHARYNGITIS
     Dosage: 1 TABLET ORAL
     Route: 048
     Dates: start: 20041101, end: 20041101

REACTIONS (2)
  - DYSTONIA [None]
  - EXTRAPYRAMIDAL DISORDER [None]
